FAERS Safety Report 5714187-1 (Version None)
Quarter: 2008Q2

REPORT INFORMATION
  Report Type: 
  Country: None (occurrence: None)
  Receive Date: 20080423
  Receipt Date: 20070530
  Transmission Date: 20081010
  Serious: No
  Sender: FDA-Public Use
  Company Number: US-KINGPHARMUSA00001-K200700665

PATIENT

DRUGS (4)
  1. SKELAXIN [Suspect]
     Indication: RHEUMATOID ARTHRITIS
     Dosage: 800 MG, PRN
     Route: 048
     Dates: start: 20070301, end: 20070528
  2. HUMIRA [Concomitant]
  3. CELEBREX [Concomitant]
     Dosage: 200 MG, QD
  4. SYNTHROID [Concomitant]
     Dosage: .05 UNK, QD

REACTIONS (4)
  - PAIN OF SKIN [None]
  - PRURITUS [None]
  - RASH [None]
  - URTICARIA [None]
